FAERS Safety Report 21016329 (Version 1)
Quarter: 2022Q2

REPORT INFORMATION
  Report Type: Spontaneous
  Country: US (occurrence: None)
  Receive Date: 20220627
  Receipt Date: 20220627
  Transmission Date: 20220721
  Serious: Yes (Hospitalization)
  Sender: FDA-Public Use
  Company Number: None

PATIENT
  Age: 55 Year
  Sex: Male

DRUGS (2)
  1. ALPRAZOLAM [Suspect]
     Active Substance: ALPRAZOLAM
     Dosage: FREQUENCY : 3 TIMES A DAY;?
     Route: 048
  2. ZOLPIDEM TARTRATE [Suspect]
     Active Substance: ZOLPIDEM TARTRATE
     Dosage: FREQUENCY : AT BEDTIME;?
     Route: 048

REACTIONS (2)
  - Alcohol use [None]
  - Intentional overdose [None]

NARRATIVE: CASE EVENT DATE: 20220524
